FAERS Safety Report 9957657 (Version 1)
Quarter: 2014Q1

REPORT INFORMATION
  Report Type: Spontaneous
  Country: PR (occurrence: PR)
  Receive Date: 20140304
  Receipt Date: 20140304
  Transmission Date: 20141002
  Serious: No
  Sender: FDA-Public Use
  Company Number: PR-ABBVIE-13P-131-1099502-00

PATIENT
  Sex: Female
  Weight: 77.18 kg

DRUGS (13)
  1. HUMIRA [Suspect]
     Indication: CROHN^S DISEASE
     Route: 058
     Dates: start: 2010, end: 201304
  2. HUMIRA [Suspect]
     Indication: RHEUMATOID ARTHRITIS
  3. ASACOL [Concomitant]
     Indication: CROHN^S DISEASE
     Route: 048
  4. LEVSIN [Concomitant]
     Indication: CROHN^S DISEASE
     Route: 048
  5. ASACOL [Concomitant]
     Indication: CROHN^S DISEASE
     Route: 048
  6. VITAMIN B12 [Concomitant]
     Indication: SUPPLEMENTATION THERAPY
     Route: 048
  7. IRON [Concomitant]
     Indication: SUPPLEMENTATION THERAPY
     Route: 048
  8. FOLIC ACID [Concomitant]
     Indication: SUPPLEMENTATION THERAPY
     Route: 048
  9. VITAMIN E [Concomitant]
     Indication: SUPPLEMENTATION THERAPY
     Route: 048
  10. VITAMIN D3 [Concomitant]
     Indication: SUPPLEMENTATION THERAPY
     Route: 048
  11. VITAMIN C [Concomitant]
     Indication: SUPPLEMENTATION THERAPY
     Route: 048
  12. CALCIUM [Concomitant]
     Indication: SUPPLEMENTATION THERAPY
     Route: 048
  13. TYLENOL [Concomitant]
     Indication: INFLAMMATION
     Dosage: AS NEEDED
     Route: 048

REACTIONS (2)
  - Injection site inflammation [Recovered/Resolved]
  - Injection site erythema [Recovered/Resolved]
